FAERS Safety Report 18257425 (Version 3)
Quarter: 2020Q3

REPORT INFORMATION
  Report Type: Spontaneous
  Country: US (occurrence: US)
  Receive Date: 20200911
  Receipt Date: 20200929
  Transmission Date: 20201103
  Serious: No
  Sender: FDA-Public Use
  Company Number: US-GLAXOSMITHKLINE-US2020AMR178606

PATIENT
  Sex: Female

DRUGS (2)
  1. ZEJULA [Suspect]
     Active Substance: NIRAPARIB
     Dosage: 100 MG, QD
     Dates: start: 20200921
  2. ZEJULA [Suspect]
     Active Substance: NIRAPARIB
     Indication: OVARIAN CANCER
     Dosage: 200 MG, QD (QAM)
     Route: 065
     Dates: start: 20200825

REACTIONS (10)
  - Dizziness [Unknown]
  - Night sweats [Unknown]
  - Abdominal discomfort [Unknown]
  - Nausea [Unknown]
  - Decreased appetite [Recovered/Resolved]
  - Insomnia [Unknown]
  - Abdominal pain upper [Recovered/Resolved]
  - Hypertension [Recovering/Resolving]
  - Weight decreased [Unknown]
  - Ill-defined disorder [Unknown]
